FAERS Safety Report 4764143-5 (Version None)
Quarter: 2005Q3

REPORT INFORMATION
  Report Type: 
  Country: None (occurrence: None)
  Receive Date: 20050908
  Receipt Date: 20050325
  Transmission Date: 20060218
  Serious: Yes (Death, Hospitalization)
  Sender: FDA-Public Use
  Company Number: FR-MERCK-0503FRA00109

PATIENT
  Age: 66 Year
  Sex: Female
  Weight: 90 kg

DRUGS (6)
  1. PRIMAXIN [Suspect]
     Indication: WOUND SEPSIS
     Route: 042
     Dates: start: 20050207, end: 20050301
  2. VORICONAZOLE [Suspect]
     Indication: SEPSIS
     Route: 042
     Dates: start: 20050225, end: 20050306
  3. NOREPINEPHRINE HYDROCHLORIDE [Suspect]
     Route: 030
     Dates: start: 20050220, end: 20050306
  4. DOPEXAMINE [Suspect]
     Route: 065
     Dates: start: 20050220, end: 20050306
  5. METOCLOPRAMIDE HYDROCHLORIDE [Suspect]
     Route: 042
     Dates: start: 20050220, end: 20050306
  6. OMEPRAZOLE [Suspect]
     Route: 042
     Dates: start: 20050220, end: 20050306

REACTIONS (2)
  - DERMATITIS BULLOUS [None]
  - MULTI-ORGAN FAILURE [None]
